FAERS Safety Report 9371093 (Version 1)
Quarter: 2013Q2

REPORT INFORMATION
  Report Type: Spontaneous
  Country: US (occurrence: None)
  Receive Date: 20130626
  Receipt Date: 20130626
  Transmission Date: 20140414
  Serious: Yes (Death)
  Sender: FDA-Public Use
  Company Number: None

PATIENT
  Age: 65 Year
  Sex: 0
  Weight: 110.4 kg

DRUGS (14)
  1. SALINE [Suspect]
     Dates: start: 20130507
  2. COREG [Concomitant]
  3. PRILOSEC [Concomitant]
  4. ZYLOPRIM [Concomitant]
  5. ZOCOR [Concomitant]
  6. SENSIPAR [Concomitant]
  7. RENVELA [Concomitant]
  8. METOLAZONE [Concomitant]
  9. COUMADIN [Concomitant]
  10. DOXAZOSIN [Concomitant]
  11. PROAIR [Concomitant]
  12. PROVENTIL HFA [Concomitant]
  13. CITALOPRAM [Concomitant]
  14. NORVASC [Concomitant]

REACTIONS (11)
  - Neck pain [None]
  - Headache [None]
  - Nausea [None]
  - Dyspnoea [None]
  - Pneumonia [None]
  - Back pain [None]
  - Vomiting [None]
  - Unresponsive to stimuli [None]
  - Atrial fibrillation [None]
  - Bradycardia [None]
  - Medical device complication [None]
